FAERS Safety Report 8762134 (Version 1)
Quarter: 2012Q4

REPORT INFORMATION
  Report Type: 
  Country: US (occurrence: US)
  Receive Date: 20120830
  Receipt Date: 20120830
  Transmission Date: 20130627
  Serious: Yes (Hospitalization)
  Sender: FDA-Public Use
  Company Number: US-ASTRAZENECA-2012SE60552

PATIENT
  Age: 78 Year
  Sex: Male
  Weight: 44.9 kg

DRUGS (6)
  1. SYMBICORT PMDI [Suspect]
     Indication: CHRONIC OBSTRUCTIVE PULMONARY DISEASE
     Dosage: 160 MCG, 2 PUFFS, BID
     Route: 055
     Dates: start: 20120521
  2. SYMBICORT PMDI [Suspect]
     Indication: ASTHMA
     Dosage: 160 MCG, 2 PUFFS, BID
     Route: 055
     Dates: start: 20120521
  3. SYMBICORT PMDI [Suspect]
     Indication: EXPOSURE TO TOXIC AGENT
     Dosage: 160 MCG, 2 PUFFS, BID
     Route: 055
     Dates: start: 20120521
  4. AMLODIPINE BESYLATE [Concomitant]
     Indication: BLOOD PRESSURE ABNORMAL
     Route: 048
     Dates: start: 201201
  5. COMBIVENT [Concomitant]
     Indication: WHEEZING
     Route: 058
  6. COMBIVENT [Concomitant]
     Indication: WHEEZING
     Dosage: 2 PUFFS, QID
     Route: 058

REACTIONS (4)
  - Lung infection [Recovered/Resolved]
  - Dyspnoea [Unknown]
  - Wheezing [Unknown]
  - Weight gain poor [Unknown]
